FAERS Safety Report 15343166 (Version 1)
Quarter: 2018Q3

REPORT INFORMATION
  Report Type: Report from Study
  Country: IN (occurrence: IN)
  Receive Date: 20180903
  Receipt Date: 20180903
  Transmission Date: 20181010
  Serious: Yes (Hospitalization, Other)
  Sender: FDA-Public Use
  Company Number: IN-ROCHE-2173516

PATIENT
  Age: 80 Year
  Sex: Male

DRUGS (2)
  1. ACCENTRIX [Suspect]
     Active Substance: RANIBIZUMAB
     Indication: DIABETIC RETINAL OEDEMA
     Dosage: 0.05 ML, PRN
     Route: 031
  2. ACCENTRIX [Suspect]
     Active Substance: RANIBIZUMAB
     Dosage: 0.05 ML, PRN
     Route: 031
     Dates: start: 20180731, end: 20180731

REACTIONS (6)
  - Vitreous haze [Recovering/Resolving]
  - Anterior chamber cell [Recovering/Resolving]
  - Endophthalmitis [Not Recovered/Not Resolved]
  - Vitreous floaters [Unknown]
  - Hypopyon [Unknown]
  - Paracentesis eye abnormal [Unknown]

NARRATIVE: CASE EVENT DATE: 20180802
